FAERS Safety Report 15163633 (Version 1)
Quarter: 2018Q3

REPORT INFORMATION
  Report Type: Spontaneous
  Country: JP (occurrence: JP)
  Receive Date: 20180719
  Receipt Date: 20180719
  Transmission Date: 20181010
  Serious: Yes (Other)
  Sender: FDA-Public Use
  Company Number: JP-009507513-1807JPN001203J

PATIENT
  Sex: Female

DRUGS (3)
  1. PREMINENT TABLETS LD [Suspect]
     Active Substance: HYDROCHLOROTHIAZIDE\LOSARTAN POTASSIUM
     Dosage: UNK
     Route: 048
  2. PREMINENT TABLETS LD [Suspect]
     Active Substance: HYDROCHLOROTHIAZIDE\LOSARTAN POTASSIUM
     Dosage: UNK
     Route: 048
  3. PREMINENT TABLETS HD [Suspect]
     Active Substance: HYDROCHLOROTHIAZIDE\LOSARTAN POTASSIUM
     Dosage: UNK
     Route: 048

REACTIONS (3)
  - Blood pressure increased [Unknown]
  - Blood pressure decreased [Recovered/Resolved]
  - Diabetes mellitus [Unknown]
